FAERS Safety Report 8217561-7 (Version None)
Quarter: 2012Q1

REPORT INFORMATION
  Report Type: 
  Country: None (occurrence: None)
  Receive Date: 20120319
  Receipt Date: 20120319
  Transmission Date: 20120608
  Serious: Yes (Life-Threatening)
  Sender: FDA-Public Use
  Company Number: None

PATIENT
  Age: 47 Year
  Sex: Female
  Weight: 55.338 kg

DRUGS (1)
  1. SAVELLA [Suspect]
     Indication: FIBROMYALGIA
     Dosage: 25 MG
     Route: 048
     Dates: start: 20110901, end: 20120101

REACTIONS (14)
  - ABDOMINAL PAIN UPPER [None]
  - EUPHORIC MOOD [None]
  - MENTAL DISORDER [None]
  - SUICIDAL IDEATION [None]
  - CRYING [None]
  - APHAGIA [None]
  - DEPRESSION [None]
  - COMPULSIVE SHOPPING [None]
  - HYPERHIDROSIS [None]
  - THINKING ABNORMAL [None]
  - ABNORMAL BEHAVIOUR [None]
  - INSOMNIA [None]
  - PATHOLOGICAL GAMBLING [None]
  - CONSTIPATION [None]
